FAERS Safety Report 8327927-2 (Version None)
Quarter: 2012Q2

REPORT INFORMATION
  Report Type: 
  Country: None (occurrence: None)
  Receive Date: 20120502
  Receipt Date: 20120422
  Transmission Date: 20120825
  Serious: Yes (Hospitalization)
  Sender: FDA-Public Use
  Company Number: US-SANOFI-AVENTIS-2012SA028016

PATIENT
  Age: 77 Year
  Sex: Male

DRUGS (4)
  1. LANTUS [Suspect]
     Dosage: DOSE:5 UNIT(S)
     Route: 058
  2. LANTUS [Suspect]
     Dosage: DOSE:45 UNIT(S)
     Route: 058
  3. LANTUS [Suspect]
     Dosage: DOSE:25 UNIT(S)
     Route: 058
  4. SOLOSTAR [Suspect]

REACTIONS (4)
  - BLOOD GLUCOSE INCREASED [None]
  - OEDEMA PERIPHERAL [None]
  - CELLULITIS [None]
  - RASH [None]
